FAERS Safety Report 5182253-8 (Version None)
Quarter: 2006Q4

REPORT INFORMATION
  Report Type: 
  Country: None (occurrence: None)
  Receive Date: 20061220
  Receipt Date: 20061113
  Transmission Date: 20070319
  Serious: Yes (Hospitalization, Other)
  Sender: FDA-Public Use
  Company Number: 2006AP05429

PATIENT
  Age: 27260 Day
  Sex: Male
  Weight: 32.3 kg

DRUGS (4)
  1. CASODEX [Suspect]
     Indication: PROSTATE CANCER
     Route: 048
     Dates: start: 20060823, end: 20060926
  2. ZOLADEX [Suspect]
     Indication: PROSTATE CANCER
     Route: 058
     Dates: start: 20060829, end: 20060829
  3. RYO-KEI-JUTSU-KAN-TO [Concomitant]
     Route: 048
     Dates: start: 20000101
  4. GASTER D [Concomitant]
     Route: 048
     Dates: start: 20000101

REACTIONS (2)
  - BLOOD POTASSIUM INCREASED [None]
  - EOSINOPHIL PERCENTAGE INCREASED [None]
